FAERS Safety Report 4338961-1 (Version None)
Quarter: 2004Q2

REPORT INFORMATION
  Report Type: 
  Country: None (occurrence: None)
  Receive Date: 20040409
  Receipt Date: 20040329
  Transmission Date: 20050107
  Serious: Yes (Death)
  Sender: FDA-Public Use
  Company Number: 2004AC00053

PATIENT
  Age: 54 Year
  Sex: Male

DRUGS (3)
  1. MARCAINE [Suspect]
  2. LIDOCAINE 1% [Suspect]
  3. XYLOCAINE [Suspect]

REACTIONS (19)
  - BIOPSY EPIDIDYMIS ABNORMAL [None]
  - CONTUSION [None]
  - CORONARY ARTERY ATHEROSCLEROSIS [None]
  - CORONARY ARTERY STENOSIS [None]
  - DRUG ABUSER [None]
  - DRUG TOXICITY [None]
  - EPIDIDYMAL DISORDER [None]
  - EXCORIATION [None]
  - HEPATIC STEATOSIS [None]
  - LACERATION [None]
  - NEPHROSCLEROSIS [None]
  - OVERDOSE [None]
  - PEYRONIE'S DISEASE [None]
  - PULMONARY CONGESTION [None]
  - PULMONARY OEDEMA [None]
  - SCROTAL OEDEMA [None]
  - SKIN NODULE [None]
  - SOFT TISSUE HAEMORRHAGE [None]
  - TESTICULAR HAEMORRHAGE [None]
